FAERS Safety Report 23966763 (Version 1)
Quarter: 2024Q2

REPORT INFORMATION
  Report Type: Spontaneous
  Country: CN (occurrence: CN)
  Receive Date: 20240612
  Receipt Date: 20240612
  Transmission Date: 20240716
  Serious: Yes (Other)
  Sender: FDA-Public Use
  Company Number: CN-PFIZER INC-PV202400074780

PATIENT
  Age: 42 Year
  Sex: Female

DRUGS (3)
  1. TIGECYCLINE [Suspect]
     Active Substance: TIGECYCLINE
     Indication: Infection
     Dosage: 50 MG, 2X/DAY
     Route: 041
     Dates: start: 20240519, end: 20240521
  2. AVIBACTAM SODIUM\CEFTAZIDIME [Concomitant]
     Active Substance: AVIBACTAM SODIUM\CEFTAZIDIME
     Indication: Anti-infective therapy
     Dosage: UNK
     Dates: start: 20240521
  3. FLUCONAZOLE [Concomitant]
     Active Substance: FLUCONAZOLE
     Indication: Anti-infective therapy
     Dosage: UNK
     Dates: start: 20240521

REACTIONS (3)
  - Gastrointestinal haemorrhage [Recovering/Resolving]
  - Blood fibrinogen decreased [Recovering/Resolving]
  - Infection [Unknown]

NARRATIVE: CASE EVENT DATE: 20240521
